FAERS Safety Report 10363518 (Version 1)
Quarter: 2014Q1

REPORT INFORMATION
  Report Type: Spontaneous
  Country: US (occurrence: None)
  Receive Date: 20140306
  Receipt Date: 20140306
  Transmission Date: 20141002
  Serious: Yes (Other)
  Sender: FDA-Public Use
  Company Number: 163-21880-13061597

PATIENT
  Age: 67 Year
  Sex: Male

DRUGS (11)
  1. REVLIMID (LENALIDOMIDE)(5 MILLIGRAM, CAPSULES) [Suspect]
     Indication: CHRONIC LYMPHOCYTIC LEUKAEMIA
     Dosage: 1 IN 2 D
     Route: 048
     Dates: start: 20120508
  2. MEGESTROL [Suspect]
  3. SYNTHROID(LEVOTHYROXINE SODIUM)(UNKNOWN) [Concomitant]
  4. NABUMETONE(NABUMETONE)(UNKNOWN) [Concomitant]
  5. GABAPENTIN(GABAPENTIN)(UNKNOWN) [Concomitant]
  6. OMEPRAZOLE(OMEPRAZOLE)(UNKNOWN) [Concomitant]
  7. FLOMAX [Suspect]
  8. CARAFATE(SUCRALFATE)(UNKNOWN) [Concomitant]
  9. COMPLETE MULTIVITAMIN(MULTIVITAMINS)(UNKNOWN) [Concomitant]
  10. FENTANYL(FENTANYL)(POULTICE OR PATCH) [Concomitant]
  11. OXAPROZIN(OXAPROZIN)(UNKNOWN) [Concomitant]

REACTIONS (1)
  - Spinal compression fracture [None]
